FAERS Safety Report 17047074 (Version 2)
Quarter: 2019Q4

REPORT INFORMATION
  Report Type: Spontaneous
  Country: CN (occurrence: CN)
  Receive Date: 20191119
  Receipt Date: 20191128
  Transmission Date: 20200122
  Serious: Yes (Hospitalization, Disabling, Other)
  Sender: FDA-Public Use
  Company Number: CN-ACCORD-161325

PATIENT
  Age: 24 Year
  Sex: Female

DRUGS (2)
  1. CLONAZEPAM. [Suspect]
     Active Substance: CLONAZEPAM
     Indication: EPILEPSY
     Dosage: 2 MG P.O., 21-DAY REGIMEN
     Route: 048
  2. VALPROIC ACID. [Interacting]
     Active Substance: VALPROIC ACID
     Indication: EPILEPSY
     Dosage: 500 MG P.O.,21-DAY REGIMEN, SUSTAINED-RELEASE
     Route: 048

REACTIONS (7)
  - Gait inability [Not Recovered/Not Resolved]
  - Treatment noncompliance [Unknown]
  - Dysstasia [Not Recovered/Not Resolved]
  - Bedridden [Not Recovered/Not Resolved]
  - Drug interaction [Unknown]
  - Myopathy toxic [Not Recovered/Not Resolved]
  - Somnolence [Unknown]
